FAERS Safety Report 7369895-6 (Version None)
Quarter: 2011Q1

REPORT INFORMATION
  Report Type: 
  Country: None (occurrence: None)
  Receive Date: 20110323
  Receipt Date: 20100817
  Transmission Date: 20110831
  Serious: Yes (Other)
  Sender: FDA-Public Use
  Company Number: US-BAYER-201018319NA

PATIENT
  Sex: Female
  Weight: 67 kg

DRUGS (15)
  1. ALEVE [Concomitant]
  2. FLUTICASONE PROPIONATE [Concomitant]
     Indication: HYPERSENSITIVITY
     Dosage: UNK
     Dates: start: 20081001
  3. ALLEGRA [Concomitant]
     Indication: MULTIPLE ALLERGIES
     Dosage: UNK
     Dates: start: 20060201, end: 20070801
  4. FEXOFENADINE [Concomitant]
     Indication: HYPERSENSITIVITY
     Dosage: UNK
     Dates: start: 20060201, end: 20070801
  5. AMOXICILLIN [Concomitant]
     Indication: MITRAL VALVE PROLAPSE
     Dosage: UNK
  6. NASONEX [Concomitant]
  7. TRAZODONE [Concomitant]
  8. YAZ [Suspect]
     Indication: POSTMENOPAUSAL HAEMORRHAGE
     Route: 048
     Dates: start: 20051201
  9. YASMIN [Suspect]
     Indication: POSTMENOPAUSAL HAEMORRHAGE
     Route: 048
     Dates: start: 20051201
  10. CELEBREX [Concomitant]
     Indication: HYPERSENSITIVITY
     Dosage: UNK
     Dates: start: 20060301
  11. AXERT [Concomitant]
     Indication: HEADACHE
     Dosage: UNK
     Dates: start: 20061101
  12. SINGULAIR [Concomitant]
     Indication: MULTIPLE ALLERGIES
     Dosage: UNK
     Dates: start: 20060201, end: 20070901
  13. FLONASE [Concomitant]
     Indication: MULTIPLE ALLERGIES
     Dosage: UNK
     Dates: start: 20061001
  14. HYDROXIZINE [Concomitant]
     Indication: HYPERSENSITIVITY
     Dosage: UNK
     Dates: start: 20061001
  15. RESTORIL [Concomitant]
     Dosage: UNK
     Dates: start: 20060801

REACTIONS (6)
  - MENTAL DISORDER [None]
  - PULMONARY EMBOLISM [None]
  - MALAISE [None]
  - MITRAL VALVE PROLAPSE [None]
  - MIGRAINE [None]
  - PNEUMONIA [None]
